FAERS Safety Report 20427773 (Version 1)
Quarter: 2022Q1

REPORT INFORMATION
  Report Type: Report from Study
  Country: US (occurrence: US)
  Receive Date: 20220204
  Receipt Date: 20220204
  Transmission Date: 20220423
  Serious: No
  Sender: FDA-Public Use
  Company Number: US-Ipsen Biopharmaceuticals, Inc.-2022-02392

PATIENT
  Age: 53 Year
  Sex: Male

DRUGS (1)
  1. SOMATULINE DEPOT [Suspect]
     Active Substance: LANREOTIDE ACETATE
     Indication: Carcinoid tumour
     Route: 058
     Dates: start: 20211017

REACTIONS (7)
  - Malaise [Recovering/Resolving]
  - Pyrexia [Unknown]
  - Influenza [Unknown]
  - Infrequent bowel movements [Unknown]
  - Constipation [Unknown]
  - Product dose omission issue [Unknown]
  - Inappropriate schedule of product administration [Unknown]

NARRATIVE: CASE EVENT DATE: 20211001
